FAERS Safety Report 12837481 (Version 1)
Quarter: 2016Q4

REPORT INFORMATION
  Report Type: Spontaneous
  Country: UA (occurrence: UA)
  Receive Date: 20161012
  Receipt Date: 20161012
  Transmission Date: 20170207
  Serious: No
  Sender: FDA-Public Use
  Company Number: UA-LUPIN PHARMACEUTICALS INC.-2016-02147

PATIENT
  Age: 5 Year
  Sex: Male

DRUGS (5)
  1. NEOPHYLLINE [Concomitant]
     Active Substance: AMINOPHYLLINE
     Indication: SINUSITIS
     Route: 065
     Dates: start: 20160510
  2. CEFANTRAL [Suspect]
     Active Substance: CEFOTAXIME SODIUM
     Indication: PNEUMONIA
     Route: 042
     Dates: start: 20160510, end: 20160515
  3. ASCORIL [Concomitant]
     Indication: SINUSITIS
     Route: 065
     Dates: start: 20160510
  4. EDEM [Concomitant]
     Indication: SINUSITIS
     Route: 065
     Dates: start: 20160510
  5. ACC [Concomitant]
     Active Substance: ACETYLCYSTEINE
     Indication: SINUSITIS
     Route: 065
     Dates: start: 20160510

REACTIONS (2)
  - Pyrexia [Recovered/Resolved]
  - Tremor [Recovered/Resolved]

NARRATIVE: CASE EVENT DATE: 20160515
